FAERS Safety Report 22172833 (Version 1)
Quarter: 2023Q2

REPORT INFORMATION
  Report Type: Spontaneous
  Country: US (occurrence: None)
  Receive Date: 20230403
  Receipt Date: 20230403
  Transmission Date: 20230722
  Serious: Yes (Disabling)
  Sender: FDA-Public Use
  Company Number: None

PATIENT
  Age: 72 Year
  Sex: Male
  Weight: 78.75 kg

DRUGS (1)
  1. FASENRA [Suspect]
     Active Substance: BENRALIZUMAB
     Indication: Asthma
     Dosage: OTHER QUANTITY : 1 INJECTION(S);?OTHER FREQUENCY : BIMONTHLY;?OTHER ROUTE : INJECTED INTO FATTY TISS
     Route: 050
     Dates: start: 20221212, end: 20230403

REACTIONS (12)
  - Nasopharyngitis [None]
  - Conjunctivitis [None]
  - Feeling hot [None]
  - Tremor [None]
  - Oral herpes [None]
  - Tongue blistering [None]
  - Swollen tongue [None]
  - Dysphagia [None]
  - Dyspnoea [None]
  - Hypersensitivity [None]
  - Allergy to metals [None]
  - Product label issue [None]

NARRATIVE: CASE EVENT DATE: 20230121
